FAERS Safety Report 4726434-3 (Version None)
Quarter: 2005Q3

REPORT INFORMATION
  Report Type: 
  Country: None (occurrence: None)
  Receive Date: 20050726
  Receipt Date: 20050406
  Transmission Date: 20060218
  Serious: No
  Sender: FDA-Public Use
  Company Number: REM_00099_2005

PATIENT
  Age: 50 Year
  Sex: Female
  Weight: 48 kg

DRUGS (18)
  1. REMODULIN [Suspect]
     Indication: PULMONARY HYPERTENSION
     Dosage: 66. (PARTIALLY ILLEGABLE) NG/KG/MIN CONTINUOUS SC
     Route: 058
     Dates: start: 20040122
  2. PRO GEL C [Concomitant]
  3. TRACLEER [Concomitant]
  4. SINGULAIR [Concomitant]
  5. VIAGRA [Concomitant]
  6. ALBUTEROL [Concomitant]
  7. ATROVENT [Concomitant]
  8. MULTI-VITAMIN [Concomitant]
  9. APAP TAB [Concomitant]
  10. BENADRYL ^PARKE DAVIS^ /ISR/ [Concomitant]
  11. LASIX [Concomitant]
  12. MAXAIR [Concomitant]
  13. PLAVIX [Concomitant]
  14. ADVAIR DISKUS 100/50 [Concomitant]
  15. LIDODERM [Concomitant]
  16. DARVOCET-N 100 [Concomitant]
  17. COMPAZINE [Concomitant]
  18. MAXALT /NET/ [Concomitant]

REACTIONS (1)
  - LOCAL SWELLING [None]
